FAERS Safety Report 9263835 (Version 1)
Quarter: 2013Q2

REPORT INFORMATION
  Report Type: Spontaneous
  Country: US (occurrence: None)
  Receive Date: 20130429
  Receipt Date: 20130429
  Transmission Date: 20140414
  Serious: No
  Sender: FDA-Public Use
  Company Number: None

PATIENT
  Age: 67 Year
  Sex: Male
  Weight: 133.8 kg

DRUGS (1)
  1. VALSARTAN [Suspect]
     Indication: CARDIAC FAILURE
     Route: 048
     Dates: start: 20050727, end: 20130425

REACTIONS (1)
  - Myalgia [None]
